FAERS Safety Report 4820245-6 (Version None)
Quarter: 2005Q4

REPORT INFORMATION
  Report Type: 
  Country: None (occurrence: None)
  Receive Date: 20051011
  Receipt Date: 20050721
  Transmission Date: 20060501
  Serious: Yes (Hospitalization, Other)
  Sender: FDA-Public Use
  Company Number: ENTC2005-0016

PATIENT
  Sex: Male

DRUGS (4)
  1. STALEVO 100 [Suspect]
     Indication: PARKINSON'S DISEASE
     Dosage: TID, ORAL
     Route: 048
     Dates: start: 20041021, end: 20041201
  2. LEVOXYL [Concomitant]
  3. DIGOXIN [Concomitant]
  4. CARDURA [Concomitant]

REACTIONS (1)
  - PLATELET COUNT DECREASED [None]
